FAERS Safety Report 21652151 (Version 2)
Quarter: 2022Q4

REPORT INFORMATION
  Report Type: Spontaneous
  Country: BR (occurrence: BR)
  Receive Date: 20221128
  Receipt Date: 20221208
  Transmission Date: 20230112
  Serious: No
  Sender: FDA-Public Use
  Company Number: BR-ORGANON-O2211BRA001239

PATIENT
  Age: 35 Year
  Sex: Female
  Weight: 67 kg

DRUGS (5)
  1. ORGALUTRAN [Suspect]
     Active Substance: GANIRELIX ACETATE
     Dosage: 1 SYRINGE
     Dates: start: 20221104, end: 20221107
  2. CORIFOLLITROPIN ALFA [Suspect]
     Active Substance: CORIFOLLITROPIN ALFA
     Indication: In vitro fertilisation
     Dosage: UNK
  3. SERTRALINE [Concomitant]
     Active Substance: SERTRALINE HYDROCHLORIDE
     Dosage: UNK
  4. CORIFOLLITROPIN ALFA [Concomitant]
     Active Substance: CORIFOLLITROPIN ALFA
     Indication: In vitro fertilisation
     Dosage: UNK
  5. FOLLITROPIN\LUTROPIN ALFA [Concomitant]
     Active Substance: FOLLITROPIN\LUTROPIN ALFA
     Indication: In vitro fertilisation
     Dosage: UNK

REACTIONS (2)
  - Ovulation disorder [Unknown]
  - Drug ineffective [Unknown]

NARRATIVE: CASE EVENT DATE: 20221107
